FAERS Safety Report 8571979-1 (Version None)
Quarter: 2012Q3

REPORT INFORMATION
  Report Type: 
  Country: None (occurrence: None)
  Receive Date: 20120806
  Receipt Date: 20120730
  Transmission Date: 20120928
  Serious: Yes (Hospitalization)
  Sender: FDA-Public Use
  Company Number: US-BAYER-2012-077187

PATIENT
  Age: 82 Year
  Sex: Female
  Weight: 59 kg

DRUGS (3)
  1. ALEVE (CAPLET) [Suspect]
     Indication: LIMB INJURY
     Dosage: 2 TAB, QD
     Route: 048
     Dates: start: 20120729
  2. VITAMIN TAB [Concomitant]
  3. IBUPROFEN [Concomitant]

REACTIONS (5)
  - CONFUSIONAL STATE [None]
  - SPEECH DISORDER [None]
  - DISORIENTATION [None]
  - CLUMSINESS [None]
  - CEREBROVASCULAR ACCIDENT [None]
